FAERS Safety Report 4409929-1 (Version None)
Quarter: 2004Q3

REPORT INFORMATION
  Report Type: 
  Country: None (occurrence: None)
  Receive Date: 20040728
  Receipt Date: 20040721
  Transmission Date: 20050211
  Serious: Yes (Disabling)
  Sender: FDA-Public Use
  Company Number: FR-GLAXOSMITHKLINE-B0338979A

PATIENT

DRUGS (3)
  1. PAROXETINE HCL [Suspect]
     Indication: ILL-DEFINED DISORDER
  2. VALPROATE SODIUM [Suspect]
  3. TERCIAN [Concomitant]

REACTIONS (2)
  - DRUG EXPOSURE DURING PREGNANCY [None]
  - FOETAL GROWTH RETARDATION [None]
